FAERS Safety Report 9800192 (Version 2)
Quarter: 2014Q3

REPORT INFORMATION
  Report Type: Spontaneous
  Country: US (occurrence: US)
  Receive Date: 20140106
  Receipt Date: 20140814
  Transmission Date: 20150326
  Serious: No
  Sender: FDA-Public Use
  Company Number: US-009507513-1401USA001474

PATIENT
  Sex: Female
  Weight: 59.86 kg

DRUGS (1)
  1. NUVARING [Suspect]
     Active Substance: ETHINYL ESTRADIOL\ETONOGESTREL
     Indication: CONTRACEPTION
     Dosage: UNK
     Route: 067

REACTIONS (8)
  - Migraine [Unknown]
  - Ovarian cyst [Unknown]
  - Deep vein thrombosis [Recovered/Resolved]
  - Papilloma viral infection [Unknown]
  - Adnexa uteri mass [Unknown]
  - Cardiac disorder [Unknown]
  - Menorrhagia [Unknown]
  - Pelvic venous thrombosis [Recovered/Resolved]

NARRATIVE: CASE EVENT DATE: 20090915
